FAERS Safety Report 13133623 (Version 1)
Quarter: 2017Q1

REPORT INFORMATION
  Report Type: Spontaneous
  Country: US (occurrence: US)
  Receive Date: 20170120
  Receipt Date: 20170120
  Transmission Date: 20170428
  Serious: No
  Sender: FDA-Public Use
  Company Number: US-OTSUKA-2016_024437

PATIENT
  Sex: Female

DRUGS (3)
  1. REXULTI [Suspect]
     Active Substance: BREXPIPRAZOLE
     Indication: BIPOLAR DISORDER
     Dosage: 1 MG, UNK
     Route: 065
     Dates: start: 2016, end: 20161013
  2. ATIVAN [Concomitant]
     Active Substance: LORAZEPAM
     Indication: PRODUCT USED FOR UNKNOWN INDICATION
     Dosage: UNK
     Route: 065
  3. REXULTI [Suspect]
     Active Substance: BREXPIPRAZOLE
     Dosage: 0.5 MG, QD
     Route: 048
     Dates: start: 20160904, end: 2016

REACTIONS (8)
  - Hyperphagia [Unknown]
  - Burning sensation [Not Recovered/Not Resolved]
  - Pain [Unknown]
  - Withdrawal syndrome [Unknown]
  - Paraesthesia [Unknown]
  - Feeling abnormal [Unknown]
  - Toxicity to various agents [Unknown]
  - Off label use [Unknown]

NARRATIVE: CASE EVENT DATE: 2016
